FAERS Safety Report 7425457-3 (Version None)
Quarter: 2011Q2

REPORT INFORMATION
  Report Type: 
  Country: None (occurrence: None)
  Receive Date: 20110412
  Receipt Date: 20110330
  Transmission Date: 20111010
  Serious: No
  Sender: FDA-Public Use
  Company Number: 201110177

PATIENT
  Age: 30 Year
  Sex: Male

DRUGS (1)
  1. LIORESAL [Suspect]
     Indication: MUSCLE SPASTICITY
     Dosage: 200 MCG, DAILY, INTRATHECAL
     Route: 037

REACTIONS (6)
  - IMPLANT SITE ERYTHEMA [None]
  - IMPLANT SITE INFECTION [None]
  - DRUG WITHDRAWAL SYNDROME [None]
  - IMPLANT SITE SCAR [None]
  - IMPLANT SITE PAIN [None]
  - DEVICE DISLOCATION [None]
